FAERS Safety Report 5483276-1 (Version None)
Quarter: 2007Q4

REPORT INFORMATION
  Report Type: 
  Country: None (occurrence: None)
  Receive Date: 20071012
  Receipt Date: 20071004
  Transmission Date: 20080405
  Serious: Yes (Other)
  Sender: FDA-Public Use
  Company Number: PHFR2007GB02959

PATIENT

DRUGS (3)
  1. GLEEVEC [Suspect]
     Route: 065
  2. DASATINIB [Concomitant]
     Route: 065
  3. NILOTINIB [Concomitant]
     Route: 065

REACTIONS (1)
  - LUNG NEOPLASM MALIGNANT [None]
